FAERS Safety Report 4285117-7 (Version None)
Quarter: 2004Q1

REPORT INFORMATION
  Report Type: 
  Country: None (occurrence: None)
  Receive Date: 20040204
  Receipt Date: 20040122
  Transmission Date: 20041129
  Serious: Yes (Hospitalization)
  Sender: FDA-Public Use
  Company Number: FR-GLAXOSMITHKLINE-B0320634A

PATIENT
  Age: 60 Year
  Sex: Female
  Weight: 65 kg

DRUGS (3)
  1. AVANDIA [Suspect]
     Dosage: 4MG PER DAY
     Route: 048
     Dates: start: 20030901, end: 20031231
  2. GLUCOPHAGE [Concomitant]
     Dosage: 1.85G PER DAY
     Route: 048
  3. TAHOR [Concomitant]
     Dosage: 10MG PER DAY
     Route: 048

REACTIONS (4)
  - ANAEMIA [None]
  - ASTHENIA [None]
  - OEDEMA [None]
  - WEIGHT INCREASED [None]
